FAERS Safety Report 15105897 (Version 2)
Quarter: 2018Q3

REPORT INFORMATION
  Report Type: Spontaneous
  Country: FR (occurrence: FR)
  Receive Date: 20180704
  Receipt Date: 20180719
  Transmission Date: 20181010
  Serious: Yes (Death, Hospitalization)
  Sender: FDA-Public Use
  Company Number: FR-ADAAP-201800121

PATIENT
  Age: 72 Year
  Sex: Female

DRUGS (6)
  1. OMEPRAZOLE. [Concomitant]
     Active Substance: OMEPRAZOLE
     Indication: PROPHYLAXIS AGAINST GASTROINTESTINAL ULCER
     Dosage: 20
     Route: 048
  2. LUTATHERA [Suspect]
     Active Substance: LUTETIUM OXODOTREOTIDE LU-177
     Indication: CARCINOID TUMOUR OF THE SMALL BOWEL
     Route: 042
     Dates: start: 20180509, end: 20180509
  3. CRESTOR [Concomitant]
     Active Substance: ROSUVASTATIN CALCIUM
     Indication: HYPERCHOLESTEROLAEMIA
     Dosage: 5
     Route: 048
  4. DEROXAT [Concomitant]
     Active Substance: PAROXETINE HYDROCHLORIDE
     Indication: DEPRESSION
     Dosage: 20
     Route: 048
  5. LANREOTIDE [Concomitant]
     Active Substance: LANREOTIDE
     Indication: CARCINOID SYNDROME
     Dosage: 120
     Route: 058
     Dates: start: 20180510
  6. CREON [Concomitant]
     Active Substance: PANCRELIPASE AMYLASE\PANCRELIPASE LIPASE\PANCRELIPASE PROTEASE
     Indication: MALABSORPTION
     Dosage: 25000
     Route: 048

REACTIONS (3)
  - Shock haemorrhagic [Fatal]
  - Intestinal obstruction [Fatal]
  - Gastrointestinal haemorrhage [Fatal]

NARRATIVE: CASE EVENT DATE: 20180606
